FAERS Safety Report 19332941 (Version 2)
Quarter: 2022Q2

REPORT INFORMATION
  Report Type: Other
  Country: GB (occurrence: GB)
  Receive Date: 20210529
  Receipt Date: 20220420
  Transmission Date: 20220721
  Serious: No
  Sender: FDA-Public Use
  Company Number: None

PATIENT
  Age: 28 Year
  Sex: Female
  Weight: 49 kg

DRUGS (2)
  1. LEVONORGESTREL [Suspect]
     Active Substance: LEVONORGESTREL
     Indication: Post coital contraception
     Dosage: 1.5 MILLIGRAM
     Route: 048
     Dates: start: 20210515, end: 20210515
  2. LEVONORGESTREL [Suspect]
     Active Substance: LEVONORGESTREL
     Dosage: 1.5 MILLIGRAM
     Route: 048
     Dates: start: 20210515, end: 20210515

REACTIONS (3)
  - Crying [Recovered/Resolved]
  - Mood swings [Recovered/Resolved]
  - Anger [Unknown]

NARRATIVE: CASE EVENT DATE: 20210516
